FAERS Safety Report 16642515 (Version 2)
Quarter: 2019Q3

REPORT INFORMATION
  Report Type: Spontaneous
  Country: US (occurrence: US)
  Receive Date: 20190729
  Receipt Date: 20190731
  Transmission Date: 20191004
  Serious: No
  Sender: FDA-Public Use
  Company Number: US-PFIZER INC-2019318275

PATIENT
  Age: 9 Year
  Sex: Male

DRUGS (1)
  1. GENOTROPIN MQ [Suspect]
     Active Substance: SOMATROPIN
     Dosage: 1 MG, (6 DAYS A WEEK(MODEST DOSE OF 0.15MG/KG/WEEK))
     Route: 058
     Dates: start: 20170331

REACTIONS (1)
  - Hyperglycaemia [Unknown]
